FAERS Safety Report 6896001-4 (Version None)
Quarter: 2010Q3

REPORT INFORMATION
  Report Type: 
  Country: None (occurrence: None)
  Receive Date: 20100802
  Receipt Date: 20100721
  Transmission Date: 20110219
  Serious: Yes (Death)
  Sender: FDA-Public Use
  Company Number: A0733463A

PATIENT
  Age: 54 Year
  Sex: Male

DRUGS (1)
  1. AVANDIA [Suspect]
     Dosage: 4MG TWICE PER DAY
     Dates: start: 20030101, end: 20061020

REACTIONS (9)
  - ARTERIOSCLEROSIS [None]
  - CARDIAC FAILURE CONGESTIVE [None]
  - CARDIAC HYPERTROPHY [None]
  - CARDIO-RESPIRATORY ARREST [None]
  - CARDIOMYOPATHY [None]
  - DIABETES MELLITUS [None]
  - DYSPNOEA [None]
  - JAUNDICE [None]
  - MYOCARDIAL ISCHAEMIA [None]
